FAERS Safety Report 6398329-3 (Version None)
Quarter: 2009Q4

REPORT INFORMATION
  Report Type: 
  Country: None (occurrence: None)
  Receive Date: 20091007
  Receipt Date: 20090925
  Transmission Date: 20100525
  Serious: Yes (Other)
  Sender: FDA-Public Use
  Company Number: GXKR2009JP10675

PATIENT
  Age: 10 Year
  Sex: Male

DRUGS (7)
  1. TACROLIMUS [Suspect]
     Indication: GRAFT VERSUS HOST DISEASE
     Dosage: SEE IMAGE
  2. METHYLPREDNISOLONE 4MG TAB [Suspect]
     Indication: GRAFT VERSUS HOST DISEASE
     Dosage: 100 MG,
  3. PREDNISOLONE [Suspect]
     Indication: GRAFT VERSUS HOST DISEASE
     Dosage: 10 MG, ORAL; 8 MG,; 6 MG,; 2 MG,
     Route: 048
  4. FLUDARABINE PHOSPHATE [Concomitant]
  5. CYCLOPHOSPHAMIDE [Concomitant]
  6. LYMPHOGLOBULINE (ANTITHYMOCYTE IMMUNOGLOBULIN) [Concomitant]
  7. G-CSF (GRANULOCYTE COLONY STIMULATING FACTOR) [Concomitant]

REACTIONS (6)
  - BONE MARROW OEDEMA [None]
  - PAIN IN EXTREMITY [None]
  - PANCYTOPENIA [None]
  - PARAESTHESIA [None]
  - POST TRANSPLANT DISTAL LIMB SYNDROME [None]
  - TRANSPLANT [None]
